FAERS Safety Report 18779206 (Version 1)
Quarter: 2021Q1

REPORT INFORMATION
  Report Type: Report from Study
  Country: HU (occurrence: HU)
  Receive Date: 20210125
  Receipt Date: 20210125
  Transmission Date: 20210419
  Serious: Yes (Other)
  Sender: FDA-Public Use
  Company Number: HU-SUN PHARMACEUTICAL INDUSTRIES LTD-2021R1-276007

PATIENT
  Age: 35 Year
  Sex: Female

DRUGS (2)
  1. SODIUM THIOSULFATE [Suspect]
     Active Substance: SODIUM THIOSULFATE
     Indication: CUTANEOUS CALCIFICATION
     Dosage: 1000?8000 MG/DAY
     Route: 048
  2. DILTIAZEM. [Suspect]
     Active Substance: DILTIAZEM
     Indication: CUTANEOUS CALCIFICATION
     Dosage: 60 7500?12,500 (/WEEK INTRAVENOUS)
     Route: 048

REACTIONS (1)
  - Therapeutic response decreased [Unknown]
